FAERS Safety Report 4680917-3 (Version None)
Quarter: 2005Q2

REPORT INFORMATION
  Report Type: 
  Country: None (occurrence: None)
  Receive Date: 20050601
  Receipt Date: 20050601
  Transmission Date: 20051028
  Serious: No
  Sender: FDA-Public Use
  Company Number: None

PATIENT
  Age: 60 Year
  Sex: Female

DRUGS (7)
  1. PAXIL [Suspect]
     Indication: FIBROMYALGIA
     Dosage: 2 TEASPOONFUL ONCE DAILY
     Dates: start: 20031001
  2. FLEXERIL [Concomitant]
  3. NEURONTIN [Concomitant]
  4. ATIVAN [Concomitant]
  5. DEMEROL [Concomitant]
  6. MULTI-VITAMIN [Concomitant]
  7. CALCIUM GLUCONATE [Concomitant]

REACTIONS (2)
  - HEADACHE [None]
  - PHARMACEUTICAL PRODUCT COMPLAINT [None]
